FAERS Safety Report 4798931-6 (Version None)
Quarter: 2005Q4

REPORT INFORMATION
  Report Type: 
  Country: None (occurrence: None)
  Receive Date: 20051014
  Receipt Date: 20050808
  Transmission Date: 20060501
  Serious: Yes (Other)
  Sender: FDA-Public Use
  Company Number: PHEH2005US08786

PATIENT
  Age: 64 Year
  Sex: Female

DRUGS (13)
  1. ZOMETA [Suspect]
     Indication: BREAST CANCER METASTATIC
     Dosage: 4MG Q4WK
     Route: 042
     Dates: start: 20041201, end: 20050401
  2. AREDIA [Suspect]
     Indication: BREAST CANCER METASTATIC
     Dosage: 90MG Q4WK
     Dates: start: 20050501, end: 20050701
  3. DECADRON                                /CAN/ [Concomitant]
     Indication: CHEMOTHERAPY
     Dosage: 20MG IV
     Dates: start: 20041201, end: 20041201
  4. ATIVAN [Concomitant]
     Indication: ANXIETY
     Dosage: 0.5MG BID
     Dates: start: 20010101, end: 20050201
  5. EFFEXOR [Concomitant]
     Indication: ANXIETY
     Dosage: 150 MG, QD
     Dates: start: 20041201
  6. COUMADIN [Concomitant]
     Dosage: 1MG QD
     Dates: start: 20050101
  7. HYDROCHLOROTHIAZIDE [Concomitant]
     Indication: OEDEMA
     Dosage: 25MG PRN
     Dates: start: 20050101
  8. LOTREL [Concomitant]
     Indication: HYPERTENSION
     Dosage: 5/20MG QD
     Dates: start: 20041201
  9. SEROQUEL [Concomitant]
     Indication: SLEEP DISORDER
     Dosage: 25MG QHS
     Dates: start: 20041201
  10. NEURONTIN [Concomitant]
     Indication: NEUROPATHY
     Dosage: 100MG TID
     Dates: start: 20050201
  11. TAXOTERE [Concomitant]
     Indication: BREAST CANCER
     Dosage: 160MG UNK
     Dates: start: 20041201, end: 20041201
  12. HERCEPTIN ^HOFFMANN-LA ROCHE^ [Concomitant]
     Indication: BREAST CANCER
     Dosage: 4MG UNK
     Dates: start: 20041201
  13. FEMARA [Concomitant]
     Indication: BREAST CANCER
     Dosage: 2.5MG QD

REACTIONS (8)
  - BONE DEBRIDEMENT [None]
  - BONE DISORDER [None]
  - GINGIVAL SWELLING [None]
  - GINGIVITIS [None]
  - OSTEONECROSIS [None]
  - PAIN [None]
  - PAIN IN JAW [None]
  - TOOTH EXTRACTION [None]
